FAERS Safety Report 10505556 (Version 1)
Quarter: 2014Q4

REPORT INFORMATION
  Report Type: Spontaneous
  Country: CL (occurrence: CL)
  Receive Date: 20141008
  Receipt Date: 20141008
  Transmission Date: 20150528
  Serious: Yes (Death)
  Sender: FDA-Public Use
  Company Number: CL-BIOMARINAP-CL-2014-104292

PATIENT
  Sex: Male
  Weight: 28 kg

DRUGS (1)
  1. ALDURAZYME [Suspect]
     Active Substance: LARONIDASE
     Indication: MUCOPOLYSACCHARIDOSIS I
     Dosage: UNK
     Route: 042
     Dates: start: 20071231

REACTIONS (2)
  - Multi-organ failure [Fatal]
  - Bacteraemia [Unknown]
